FAERS Safety Report 10551362 (Version 6)
Quarter: 2015Q1

REPORT INFORMATION
  Report Type: Report from Study
  Country: MY (occurrence: MY)
  Receive Date: 20141029
  Receipt Date: 20150318
  Transmission Date: 20150720
  Serious: Yes (Life-Threatening, Hospitalization, Other)
  Sender: FDA-Public Use
  Company Number: MY-EISAI MEDICAL RESEARCH-E2007-01869-CLI-MY

PATIENT
  Age: 17 Year
  Sex: Female
  Weight: 52.4 kg

DRUGS (7)
  1. PERAMPANEL [Suspect]
     Active Substance: PERAMPANEL
     Dosage: OVERDOSE: TOOK 36 TABLETS (6-DAY SUPPLY)
     Route: 048
     Dates: start: 20140829, end: 20140829
  2. FERROUS SULFATE [Concomitant]
     Active Substance: FERROUS SULFATE\FERROUS SULFATE, DRIED
  3. PERAMPANEL [Suspect]
     Active Substance: PERAMPANEL
     Dosage: CONVERSION
     Route: 048
     Dates: start: 20140818, end: 20140828
  4. FOLIC ACID. [Concomitant]
     Active Substance: FOLIC ACID
  5. TOPAMAX [Concomitant]
     Active Substance: TOPIRAMATE
  6. SIMVASTATIN. [Concomitant]
     Active Substance: SIMVASTATIN
  7. PERAMPANEL [Suspect]
     Active Substance: PERAMPANEL
     Indication: PARTIAL SEIZURES
     Dosage: DOUBLE-BLIND CORE STUDY
     Route: 048
     Dates: start: 201403, end: 20140817

REACTIONS (3)
  - Suicidal behaviour [Recovered/Resolved]
  - Somnolence [Recovered/Resolved]
  - Intentional overdose [Recovered/Resolved]

NARRATIVE: CASE EVENT DATE: 20140829
